FAERS Safety Report 10037754 (Version 3)
Quarter: 2014Q2

REPORT INFORMATION
  Report Type: Spontaneous
  Country: US (occurrence: US)
  Receive Date: 20140326
  Receipt Date: 20140617
  Transmission Date: 20141212
  Serious: No
  Sender: FDA-Public Use
  Company Number: US-PFIZER INC-2014084351

PATIENT
  Age: 54 Year
  Sex: Female

DRUGS (1)
  1. RELPAX [Suspect]
     Dosage: UNK, AS NEEDED
     Dates: start: 2013

REACTIONS (2)
  - Migraine [Unknown]
  - Vomiting [Unknown]
